FAERS Safety Report 26083641 (Version 2)
Quarter: 2025Q4

REPORT INFORMATION
  Report Type: Report from Study
  Country: US (occurrence: US)
  Receive Date: 20251124
  Receipt Date: 20251203
  Transmission Date: 20260118
  Serious: Yes (Hospitalization, Other)
  Sender: AGIOS PHARMACEUTICALS
  Company Number: US-AGIOS-2509US04503

PATIENT
  Sex: Female

DRUGS (1)
  1. MITAPIVAT [Suspect]
     Active Substance: MITAPIVAT
     Indication: Thalassaemia beta
     Dosage: 20 MILLIGRAM, BID
     Dates: start: 202502

REACTIONS (2)
  - Constipation [Unknown]
  - Intestinal obstruction [Unknown]
